FAERS Safety Report 25999876 (Version 1)
Quarter: 2025Q4

REPORT INFORMATION
  Report Type: Spontaneous
  Country: JP (occurrence: JP)
  Receive Date: 20251105
  Receipt Date: 20251105
  Transmission Date: 20260118
  Serious: Yes (Death, Disabling)
  Sender: BOEHRINGER INGELHEIM
  Company Number: JP-NBI-J202110717BIPI

PATIENT
  Age: 43 Year
  Sex: Female

DRUGS (4)
  1. OFEV [Suspect]
     Active Substance: NINTEDANIB
     Indication: Interstitial lung disease
     Route: 048
     Dates: start: 20201029, end: 20210224
  2. OFEV [Suspect]
     Active Substance: NINTEDANIB
     Indication: Scleroderma
  3. PREDNISOLONE [Concomitant]
     Active Substance: PREDNISOLONE
     Indication: Scleroderma
  4. CYCLOSPORINE [Concomitant]
     Active Substance: CYCLOSPORINE
     Indication: Scleroderma

REACTIONS (6)
  - Interstitial lung disease [Fatal]
  - Diarrhoea [Unknown]
  - Skin ulcer [Unknown]
  - Condition aggravated [Unknown]
  - Skin ulcer [Unknown]
  - Condition aggravated [Unknown]

NARRATIVE: CASE EVENT DATE: 20210225
